FAERS Safety Report 20339129 (Version 4)
Quarter: 2022Q1

REPORT INFORMATION
  Report Type: Report from Study
  Country: ZA (occurrence: ZA)
  Receive Date: 20220117
  Receipt Date: 20220211
  Transmission Date: 20220423
  Serious: Yes (Other)
  Sender: FDA-Public Use
  Company Number: ZA-NOVARTISPH-NVSC2022ZA005251

PATIENT
  Age: 44 Year
  Sex: Female

DRUGS (4)
  1. FINGOLIMOD HYDROCHLORIDE [Suspect]
     Active Substance: FINGOLIMOD HYDROCHLORIDE
     Indication: Multiple sclerosis
     Dosage: 0.5 MG, QD
     Route: 048
     Dates: start: 20220110, end: 20220122
  2. AUBAGIO [Concomitant]
     Active Substance: TERIFLUNOMIDE
     Indication: Product used for unknown indication
     Dosage: UNK, (PATIENT DID HAVE A WASHOUT PERIOD; BITMEGA; CYMGEN + DIANE)
     Route: 065
     Dates: start: 2019, end: 2020
  3. DULOXETINE HYDROCHLORIDE [Concomitant]
     Active Substance: DULOXETINE HYDROCHLORIDE
     Indication: Product used for unknown indication
     Dosage: UNK
     Route: 065
  4. DIANE (CYPROTERONE ACETATE\ETHINYL ESTRADIOL) [Concomitant]
     Active Substance: CYPROTERONE ACETATE\ETHINYL ESTRADIOL
     Indication: Product used for unknown indication
     Dosage: UNK
     Route: 065

REACTIONS (12)
  - Blood pressure fluctuation [Unknown]
  - Blood pressure increased [Recovering/Resolving]
  - Multiple sclerosis relapse [Unknown]
  - Muscle tightness [Unknown]
  - Feeling hot [Unknown]
  - Paraesthesia [Unknown]
  - Gait disturbance [Unknown]
  - Anxiety [Unknown]
  - Palpitations [Unknown]
  - Restless legs syndrome [Unknown]
  - Extensor plantar response [Unknown]
  - Insomnia [Unknown]

NARRATIVE: CASE EVENT DATE: 20220110
